FAERS Safety Report 9360756 (Version 2)
Quarter: 2013Q3

REPORT INFORMATION
  Report Type: Report from Study
  Country: CA (occurrence: CA)
  Receive Date: 20130621
  Receipt Date: 20130725
  Transmission Date: 20140515
  Serious: Yes (Other)
  Sender: FDA-Public Use
  Company Number: CA-JNJFOC-20130605875

PATIENT
  Age: 55 Year
  Sex: Female
  Weight: 134 kg

DRUGS (9)
  1. REMICADE [Suspect]
     Indication: CROHN^S DISEASE
     Route: 042
     Dates: start: 20130612
  2. MORPHINE [Concomitant]
     Route: 065
  3. SYNTHROID [Concomitant]
     Route: 065
  4. EFFEXOR [Concomitant]
     Route: 065
  5. SIMVASTATIN [Concomitant]
     Route: 065
  6. INSULIN [Concomitant]
     Route: 065
  7. METFORMIN [Concomitant]
     Route: 065
  8. IMURAN [Concomitant]
     Route: 065
  9. PREDNISONE [Concomitant]
     Route: 065

REACTIONS (1)
  - Pyoderma [Not Recovered/Not Resolved]
